FAERS Safety Report 5636912-0 (Version None)
Quarter: 2008Q1

REPORT INFORMATION
  Report Type: 
  Country: None (occurrence: None)
  Receive Date: 20080220
  Receipt Date: 20080220
  Transmission Date: 20080703
  Serious: Yes (Other)
  Sender: FDA-Public Use
  Company Number: None

PATIENT
  Age: 69 Year
  Sex: Female
  Weight: 60.782 kg

DRUGS (2)
  1. DILANTIN [Suspect]
     Indication: BRAIN OPERATION
     Dosage: 100MG 2 X''S A DA. PO
     Route: 048
     Dates: start: 20080212, end: 20080220
  2. DILANTIN [Suspect]
     Indication: CONVULSION
     Dosage: 100MG 2 X''S A DA. PO
     Route: 048
     Dates: start: 20080212, end: 20080220

REACTIONS (8)
  - BLOOD PRESSURE INCREASED [None]
  - BURNING SENSATION [None]
  - CHILLS [None]
  - EYELID DISORDER [None]
  - HOT FLUSH [None]
  - PALPITATIONS [None]
  - PHARMACEUTICAL PRODUCT COMPLAINT [None]
  - RASH MACULAR [None]
